FAERS Safety Report 8657917 (Version 3)
Quarter: 2012Q4

REPORT INFORMATION
  Report Type: 
  Country: AU (occurrence: AU)
  Receive Date: 20120710
  Receipt Date: 20120918
  Transmission Date: 20130627
  Serious: Yes (Death, Hospitalization, Other)
  Sender: FDA-Public Use
  Company Number: AU-PFIZER INC-2012161545

PATIENT
  Age: 14 Year
  Sex: Male

DRUGS (2)
  1. FLUCONAZOLE [Suspect]
     Indication: MENINGITIS CRYPTOCOCCAL
     Dosage: 400 mg, 1x/day
     Route: 048
     Dates: start: 201204
  2. ANIDULAFUNGIN [Suspect]
     Indication: ASPERGILLOSIS

REACTIONS (2)
  - Aspergillosis [Fatal]
  - Liver function test abnormal [Fatal]
